FAERS Safety Report 10596743 (Version 1)
Quarter: 2014Q4

REPORT INFORMATION
  Report Type: Spontaneous
  Country: PH (occurrence: PH)
  Receive Date: 20141120
  Receipt Date: 20141120
  Transmission Date: 20150529
  Serious: Yes (Death, Hospitalization, Other)
  Sender: FDA-Public Use
  Company Number: PH-MERCK-1411PHL008709

PATIENT
  Age: 61 Year
  Sex: Female

DRUGS (1)
  1. JANUVIA [Suspect]
     Active Substance: SITAGLIPTIN PHOSPHATE
     Indication: DIABETES MELLITUS
     Dosage: 1 TABLET ONCE A DAY
     Route: 048

REACTIONS (2)
  - Septic shock [Fatal]
  - Urinary tract infection [Fatal]

NARRATIVE: CASE EVENT DATE: 2014
